FAERS Safety Report 17750430 (Version 1)
Quarter: 2020Q2

REPORT INFORMATION
  Report Type: Spontaneous
  Country: US (occurrence: US)
  Receive Date: 20200506
  Receipt Date: 20200506
  Transmission Date: 20200714
  Serious: No
  Sender: FDA-Public Use
  Company Number: None

PATIENT
  Sex: Female

DRUGS (4)
  1. CAPECITABINE 500MG NOVADOZ PHARMACEUTICALS [Suspect]
     Active Substance: CAPECITABINE
     Indication: LYMPHOMA
     Dosage: ?          OTHER DOSE:1000/1500MG;OTHER FREQUENCY:AM/PM;?
     Route: 048
     Dates: start: 20200417
  2. CAPECITABINE 500MG NOVADOZ PHARMACEUTICALS [Suspect]
     Active Substance: CAPECITABINE
     Indication: BREAST CANCER
     Dosage: ?          OTHER DOSE:1000/1500MG;OTHER FREQUENCY:AM/PM;?
     Route: 048
     Dates: start: 20200417
  3. CAPECITABINE 500MG NOVADOZ PHARMACEUTICALS [Suspect]
     Active Substance: CAPECITABINE
     Indication: LUNG NEOPLASM MALIGNANT
     Dosage: ?          OTHER DOSE:1000/1500MG;OTHER FREQUENCY:AM/PM;?
     Route: 048
     Dates: start: 20200417
  4. CAPECITABINE 500MG NOVADOZ PHARMACEUTICALS [Suspect]
     Active Substance: CAPECITABINE
     Indication: BRAIN NEOPLASM
     Dosage: ?          OTHER DOSE:1000/1500MG;OTHER FREQUENCY:AM/PM;?
     Route: 048
     Dates: start: 20200417

REACTIONS (1)
  - Therapy non-responder [None]
